FAERS Safety Report 11547602 (Version 1)
Quarter: 2015Q3

REPORT INFORMATION
  Report Type: Spontaneous
  Country: DE (occurrence: DE)
  Receive Date: 20150924
  Receipt Date: 20150924
  Transmission Date: 20151125
  Serious: Yes (Disabling)
  Sender: FDA-Public Use
  Company Number: DE-ASTRAZENECA-2015SE83622

PATIENT
  Age: 26437 Day
  Sex: Male
  Weight: 125 kg

DRUGS (1)
  1. FORXIGA [Suspect]
     Active Substance: DAPAGLIFLOZIN
     Route: 048
     Dates: start: 20150106

REACTIONS (2)
  - Balanoposthitis [Unknown]
  - Phimosis [Unknown]

NARRATIVE: CASE EVENT DATE: 20150416
